FAERS Safety Report 5601937-8 (Version None)
Quarter: 2008Q1

REPORT INFORMATION
  Report Type: 
  Country: None (occurrence: None)
  Receive Date: 20080125
  Receipt Date: 20080114
  Transmission Date: 20080703
  Serious: Yes (Other)
  Sender: FDA-Public Use
  Company Number: US-BAYER-US-2007-024342

PATIENT
  Sex: Female

DRUGS (1)
  1. MIRENA [Suspect]
     Route: 015
     Dates: start: 20070413, end: 20070619

REACTIONS (3)
  - PAIN [None]
  - PHARMACEUTICAL PRODUCT COMPLAINT [None]
  - UTERINE RUPTURE [None]
